FAERS Safety Report 5467237-4 (Version None)
Quarter: 2007Q3

REPORT INFORMATION
  Report Type: 
  Country: None (occurrence: None)
  Receive Date: 20070925
  Receipt Date: 20070920
  Transmission Date: 20080115
  Serious: Yes (Other)
  Sender: FDA-Public Use
  Company Number: ESWYE357024SEP07

PATIENT
  Age: 66 Year
  Sex: Male

DRUGS (8)
  1. TAZOCEL [Suspect]
     Indication: MYCOBACTERIUM KANSASII PNEUMONIA
     Route: 042
     Dates: start: 20070702, end: 20070710
  2. ZYVOX [Concomitant]
     Indication: MYCOBACTERIUM KANSASII PNEUMONIA
     Route: 042
     Dates: start: 20070702, end: 20070709
  3. TROMALYT [Suspect]
     Indication: ISCHAEMIC HEART DISEASE PROPHYLAXIS
     Dosage: 300 MG EVERY
     Route: 048
     Dates: start: 19990101, end: 20070629
  4. ZYLORIC [Concomitant]
     Dosage: UNKNOWN
     Route: 048
     Dates: start: 20070707
  5. ETAMBUTOL [Suspect]
     Indication: MYCOBACTERIUM KANSASII PNEUMONIA
     Dosage: 1.6 G EVERY
     Route: 048
     Dates: start: 20070702, end: 20070714
  6. TAVANIC [Concomitant]
     Indication: MYCOBACTERIUM KANSASII PNEUMONIA
     Route: 042
     Dates: start: 20070702, end: 20070709
  7. BENADON [Suspect]
     Indication: FOLATE DEFICIENCY
     Dosage: 300 MG EVERY
     Route: 048
     Dates: start: 20070401, end: 20070629
  8. RIFATER [Suspect]
     Indication: MYCOBACTERIUM KANSASII PNEUMONIA
     Dosage: 5 TABLET EVERY
     Route: 048
     Dates: start: 20070401, end: 20070629

REACTIONS (2)
  - EOSINOPHILIA [None]
  - HEPATOCELLULAR DAMAGE [None]
